FAERS Safety Report 6475880-9 (Version None)
Quarter: 2009Q4

REPORT INFORMATION
  Report Type: 
  Country: None (occurrence: None)
  Receive Date: 20091204
  Receipt Date: 20091130
  Transmission Date: 20100525
  Serious: Yes (Hospitalization)
  Sender: FDA-Public Use
  Company Number: US-ELI_LILLY_AND_COMPANY-US200912000759

PATIENT
  Sex: Female
  Weight: 115.19 kg

DRUGS (17)
  1. BYETTA [Suspect]
     Indication: TYPE 2 DIABETES MELLITUS
     Dosage: 5 UG, 2/D
     Route: 058
     Dates: start: 20060101, end: 20060101
  2. BYETTA [Suspect]
     Dosage: 10 UG, 2/D
     Route: 058
     Dates: start: 20060101, end: 20060101
  3. BYETTA [Suspect]
     Dosage: 5 UG, 2/D
     Route: 058
     Dates: start: 20060101, end: 20070201
  4. BYETTA [Suspect]
     Dosage: 5 UG, 2/D
     Route: 058
     Dates: start: 20070501, end: 20070701
  5. BYETTA [Suspect]
     Dosage: 10 UG, 2/D
     Route: 058
     Dates: start: 20070701, end: 20090701
  6. BYETTA [Suspect]
     Dosage: 5 UG, 2/D
     Route: 058
     Dates: start: 20090701
  7. METFORMIN HCL [Concomitant]
     Indication: TYPE 2 DIABETES MELLITUS
     Dosage: 750 MG, 3/D
     Route: 048
  8. METFORMIN HCL [Concomitant]
     Dosage: 750 MG, 2/D
  9. VERAPAMIL [Concomitant]
     Indication: BLOOD PRESSURE INCREASED
     Dosage: 240 MG, 2/D
     Route: 048
  10. LISINOPRIL [Concomitant]
     Dosage: 5 MG, DAILY (1/D)
     Route: 048
  11. CATAPRES                                /UNK/ [Concomitant]
     Dosage: 0.1 MG, WEEKLY (1/W)
     Route: 062
  12. FUROSEMIDE [Concomitant]
     Dosage: 40 MG, DAILY (1/D)
     Route: 048
  13. POTASSIUM [Concomitant]
     Dosage: 10 MEQ, DAILY (1/D)
     Route: 048
  14. LIPITOR [Concomitant]
     Dosage: 10 MG, DAILY (1/D)
     Route: 048
  15. ALLOPURINOL [Concomitant]
     Dosage: 300 MG, DAILY (1/D)
     Route: 048
  16. LEVOTHYROXINE SODIUM [Concomitant]
     Dosage: 125 UG, DAILY (1/D)
     Route: 048
  17. LEVOTHYROXINE SODIUM [Concomitant]
     Dosage: 150 UG, DAILY (1/D)
     Route: 048

REACTIONS (3)
  - AORTIC VALVE STENOSIS [None]
  - CARDIAC MURMUR [None]
  - HOSPITALISATION [None]
